FAERS Safety Report 5386836-1 (Version None)
Quarter: 2007Q3

REPORT INFORMATION
  Report Type: 
  Country: None (occurrence: None)
  Receive Date: 20070713
  Receipt Date: 20070711
  Transmission Date: 20080115
  Serious: Yes (Hospitalization)
  Sender: FDA-Public Use
  Company Number: US-ROXANE LABORATORIES, INC-2007-BP-17084RO

PATIENT
  Sex: Male
  Weight: 73 kg

DRUGS (2)
  1. AZATHIOPRINE TABLETS USP, 50 MG [Suspect]
     Indication: COLITIS ULCERATIVE
     Route: 048
     Dates: start: 20070619, end: 20070622
  2. ASACOL [Concomitant]
     Indication: COLITIS ULCERATIVE
     Route: 048

REACTIONS (7)
  - ARTHRALGIA [None]
  - EYE PAIN [None]
  - MALAISE [None]
  - OCULAR HYPERAEMIA [None]
  - PANCREATITIS [None]
  - PYREXIA [None]
  - RASH [None]
